FAERS Safety Report 9316458 (Version 1)
Quarter: 2013Q2

REPORT INFORMATION
  Report Type: Spontaneous
  Country: US (occurrence: US)
  Receive Date: 20130530
  Receipt Date: 20130530
  Transmission Date: 20140414
  Serious: Yes (Other)
  Sender: FDA-Public Use
  Company Number: US-BAYER-2013-065949

PATIENT
  Age: 33 Year
  Sex: Female

DRUGS (1)
  1. YAZ [Suspect]
     Indication: MENORRHAGIA
     Dosage: UNK
     Dates: start: 200604, end: 2007

REACTIONS (5)
  - Intracranial venous sinus thrombosis [None]
  - Headache [None]
  - Hypoaesthesia [None]
  - Amnesia [None]
  - Balance disorder [None]
